FAERS Safety Report 4462501-X (Version None)
Quarter: 2004Q3

REPORT INFORMATION
  Report Type: 
  Country: None (occurrence: None)
  Receive Date: 20040928
  Receipt Date: 20040914
  Transmission Date: 20050211
  Serious: Yes (Other)
  Sender: FDA-Public Use
  Company Number: 2004066822

PATIENT
  Age: 48 Year
  Sex: Female

DRUGS (6)
  1. ZOLOFT [Suspect]
     Indication: DEPRESSION
     Dosage: 50 MG (50 MG, 1 IN 1 D ), ORAL
     Route: 048
     Dates: start: 20040712, end: 20040718
  2. LEVOCETIRIZINE (LEVOCETIRIZINE) [Concomitant]
  3. OMEPRAZOLE [Concomitant]
  4. SALBUTAMOL (SALBUTAMOL) [Concomitant]
  5. SALMETEROL (SALMETEROL) [Concomitant]
  6. FLUTICASONE PROPIONATE [Concomitant]

REACTIONS (1)
  - RETINAL DETACHMENT [None]
